FAERS Safety Report 17011577 (Version 2)
Quarter: 2020Q1

REPORT INFORMATION
  Report Type: Report from Study
  Country: IT (occurrence: IT)
  Receive Date: 20191108
  Receipt Date: 20200205
  Transmission Date: 20200409
  Serious: Yes (Death)
  Sender: FDA-Public Use
  Company Number: IT-OTSUKA-2019_037885

PATIENT
  Age: 69 Year
  Sex: Male
  Weight: 73.2 kg

DRUGS (2)
  1. DECITABINE. [Suspect]
     Active Substance: DECITABINE
     Indication: ACUTE MYELOID LEUKAEMIA
     Dosage: 4 CYCLES (40 MG,1 CYCLICAL)
     Route: 042
     Dates: start: 20181112, end: 20190315
  2. TALAVIR [Concomitant]
     Active Substance: VALACYCLOVIR HYDROCHLORIDE
     Indication: ANTIVIRAL PROPHYLAXIS
     Dosage: 500 MG (500 MG,1 IN 1 D)
     Route: 048
     Dates: start: 20190709, end: 20191026

REACTIONS (1)
  - Pneumocystis jirovecii infection [Fatal]

NARRATIVE: CASE EVENT DATE: 20191025
